FAERS Safety Report 16120667 (Version 2)
Quarter: 2019Q3

REPORT INFORMATION
  Report Type: Report from Study
  Country: CA (occurrence: CA)
  Receive Date: 20190327
  Receipt Date: 20190924
  Transmission Date: 20191004
  Serious: No
  Sender: FDA-Public Use
  Company Number: CA-ROCHE-2097480

PATIENT
  Age: 36 Year
  Sex: Female

DRUGS (3)
  1. OCREVUS [Suspect]
     Active Substance: OCRELIZUMAB
     Indication: RELAPSING-REMITTING MULTIPLE SCLEROSIS
     Dosage: FIRST DOSE 300MG  DAY 1, DAY 14 300 MG, THEN 600 MG EVERY 6 MONTHS
     Route: 042
     Dates: start: 20180321
  2. VYVANSE [Concomitant]
     Active Substance: LISDEXAMFETAMINE DIMESYLATE
     Indication: DEPRESSION
  3. VYVANSE [Concomitant]
     Active Substance: LISDEXAMFETAMINE DIMESYLATE
     Indication: FATIGUE
     Route: 048
     Dates: start: 2017

REACTIONS (5)
  - Infusion related reaction [Not Recovered/Not Resolved]
  - Dry skin [Recovered/Resolved]
  - Therapeutic response shortened [Recovering/Resolving]
  - Blister [Recovered/Resolved]
  - Cystitis [Recovered/Resolved]

NARRATIVE: CASE EVENT DATE: 20180321
